FAERS Safety Report 16866624 (Version 1)
Quarter: 2019Q4

REPORT INFORMATION
  Report Type: Spontaneous
  Country: US (occurrence: US)
  Receive Date: 20190927
  Receipt Date: 20190927
  Transmission Date: 20200122
  Serious: No
  Sender: FDA-Public Use
  Company Number: None

PATIENT
  Age: 61 Year
  Sex: Female

DRUGS (1)
  1. AMOXICILLIN 500 MG [Suspect]
     Active Substance: AMOXICILLIN
     Indication: TOOTH ABSCESS
     Dosage: ?          QUANTITY:1 TABLET(S);?
     Route: 048
     Dates: start: 20190922, end: 20190927

REACTIONS (7)
  - Pain [None]
  - Malaise [None]
  - Eructation [None]
  - Diarrhoea [None]
  - Taste disorder [None]
  - Pyrexia [None]
  - Gastrointestinal pain [None]

NARRATIVE: CASE EVENT DATE: 20190922
